FAERS Safety Report 6090198-4 (Version None)
Quarter: 2009Q1

REPORT INFORMATION
  Report Type: 
  Country: None (occurrence: None)
  Receive Date: 20090224
  Receipt Date: 20081204
  Transmission Date: 20090719
  Serious: No
  Sender: FDA-Public Use
  Company Number: US-ABBOTT-08P-163-0491799-00

PATIENT
  Sex: Female

DRUGS (8)
  1. SIMCOR [Suspect]
     Indication: DRUG USE FOR UNKNOWN INDICATION
     Dosage: 2-1000/20 MG TABLETS DAILY
     Dates: start: 20081124, end: 20081124
  2. SIMCOR [Suspect]
     Dosage: 1-1000/20 MG TABLET DAILY
     Dates: start: 20081125, end: 20081126
  3. TRIVANTIN [Concomitant]
     Indication: DRUG USE FOR UNKNOWN INDICATION
  4. FLAX OIL [Concomitant]
     Indication: DRUG USE FOR UNKNOWN INDICATION
  5. ACETYLSALICYLIC ACID SRT [Concomitant]
     Indication: DRUG USE FOR UNKNOWN INDICATION
  6. CALCIUM [Concomitant]
     Indication: DRUG USE FOR UNKNOWN INDICATION
  7. RISEDRONATE SODIUM [Concomitant]
     Indication: DRUG USE FOR UNKNOWN INDICATION
  8. ERGOCALCIFEROL [Concomitant]
     Indication: DRUG USE FOR UNKNOWN INDICATION

REACTIONS (3)
  - PRURITUS [None]
  - RASH PAPULAR [None]
  - SKIN BURNING SENSATION [None]
